FAERS Safety Report 7073969-7 (Version None)
Quarter: 2010Q4

REPORT INFORMATION
  Report Type: 
  Country: None (occurrence: None)
  Receive Date: 20101029
  Receipt Date: 20101022
  Transmission Date: 20110411
  Serious: Yes (Hospitalization, Other)
  Sender: FDA-Public Use
  Company Number: GB-ELI_LILLY_AND_COMPANY-10-11-00156

PATIENT
  Sex: Male
  Weight: 84 kg

DRUGS (5)
  1. GEMCITABINE HCL [Suspect]
     Indication: NON-SMALL CELL LUNG CANCER
     Dosage: 2584 MG, 2 IN 3 WK
     Route: 042
     Dates: start: 20100609, end: 20100616
  2. GEMCITABINE HCL [Suspect]
     Dosage: 1976 MG, 2 IN 3 WK
     Route: 042
     Dates: start: 20100714
  3. CISPLATIN [Suspect]
     Indication: NON-SMALL CELL LUNG CANCER
     Dosage: 155 MG, 1 IN 3 WK
     Route: 042
     Dates: start: 20100609, end: 20100609
  4. CISPLATIN [Suspect]
     Dosage: 115 MG, 1 IN 3 WK
     Route: 042
     Dates: start: 20100714
  5. VITAMIN B-12 [Concomitant]
     Dates: start: 20050102

REACTIONS (3)
  - HAEMOGLOBIN DECREASED [None]
  - NEUTROPENIC SEPSIS [None]
  - PLATELET COUNT DECREASED [None]
